FAERS Safety Report 11895623 (Version 1)
Quarter: 2016Q1

REPORT INFORMATION
  Report Type: Spontaneous
  Country: GB (occurrence: GB)
  Receive Date: 20160107
  Receipt Date: 20160107
  Transmission Date: 20160526
  Serious: Yes (Other)
  Sender: FDA-Public Use
  Company Number: GB-PFIZER INC-2016001449

PATIENT
  Age: 31 Year
  Sex: Female
  Weight: 70 kg

DRUGS (23)
  1. ALFENTANIL. [Concomitant]
     Active Substance: ALFENTANIL
  2. BENZYLPENICILLIN [Concomitant]
     Active Substance: PENICILLIN G
  3. METRONIDAZOLE. [Concomitant]
     Active Substance: METRONIDAZOLE
  4. CLONIDINE. [Concomitant]
     Active Substance: CLONIDINE
  5. INSULIN HUMAN [Concomitant]
     Active Substance: INSULIN HUMAN
  6. EPOPROSTENOL. [Concomitant]
     Active Substance: EPOPROSTENOL
  7. ATRACURIUM [Concomitant]
     Active Substance: ATRACURIUM
  8. SODIUM VALPROATE [Concomitant]
     Active Substance: VALPROATE SODIUM
  9. TAZOCIN [Concomitant]
     Active Substance: PIPERACILLIN SODIUM\TAZOBACTAM SODIUM
  10. DALTEPARIN SODIUM [Suspect]
     Active Substance: DALTEPARIN SODIUM
     Indication: THROMBOSIS PROPHYLAXIS
     Dosage: 500 UNITS
     Route: 058
     Dates: start: 20151207, end: 20151223
  11. FLUCLOXACILLIN [Concomitant]
     Active Substance: FLUCLOXACILLIN
  12. KETAMINE [Concomitant]
     Active Substance: KETAMINE
  13. NOREPINEPHRINE [Concomitant]
     Active Substance: NOREPINEPHRINE\NOREPINEPHRINE BITARTRATE
  14. PARACETAMOL [Concomitant]
     Active Substance: ACETAMINOPHEN
  15. MEROPENEM. [Concomitant]
     Active Substance: MEROPENEM
  16. PROPOFOL. [Concomitant]
     Active Substance: PROPOFOL
  17. VASOPRESSIN. [Concomitant]
     Active Substance: VASOPRESSIN
  18. CARBOCYSTEINE [Concomitant]
     Active Substance: CARBOCYSTEINE
  19. OXYCODONE [Concomitant]
     Active Substance: OXYCODONE
  20. HEPARIN [Concomitant]
     Active Substance: HEPARIN SODIUM
  21. HYDROCORTISONE. [Concomitant]
     Active Substance: HYDROCORTISONE
  22. METARAMINOL [Concomitant]
     Active Substance: METARAMINOL
  23. VANCOMYCIN [Concomitant]
     Active Substance: VANCOMYCIN

REACTIONS (2)
  - Skin necrosis [Unknown]
  - Cellulitis [Unknown]

NARRATIVE: CASE EVENT DATE: 20151220
